FAERS Safety Report 9868217 (Version 1)
Quarter: 2014Q1

REPORT INFORMATION
  Report Type: Report from Study
  Country: US (occurrence: US)
  Receive Date: 20140204
  Receipt Date: 20140204
  Transmission Date: 20141002
  Serious: Yes (Hospitalization)
  Sender: FDA-Public Use
  Company Number: PHEH2014US002287

PATIENT
  Age: 54 Year
  Sex: Female

DRUGS (7)
  1. VALSARTAN [Suspect]
     Indication: HYPERTENSION
     Dosage: UNK UKN, UNK
     Dates: start: 20121120, end: 20121126
  2. HYDRALAZINE [Concomitant]
     Dosage: UNK UKN, UNK
  3. LABETALOL [Concomitant]
     Dosage: UNK UKN, UNK
  4. VITAMIN D NOS [Concomitant]
     Dosage: UNK UKN, UNK
  5. FISH OIL [Concomitant]
     Dosage: UNK UKN, UNK
  6. DIOVAN [Concomitant]
     Dosage: 325 MG, UNK
  7. DAILY VITAMINS [Concomitant]

REACTIONS (3)
  - Skin disorder [Recovered/Resolved]
  - Pruritus [Recovered/Resolved]
  - Swelling [Recovered/Resolved]
